FAERS Safety Report 7718435-8 (Version None)
Quarter: 2011Q3

REPORT INFORMATION
  Report Type: 
  Country: None (occurrence: None)
  Receive Date: 20110830
  Receipt Date: 20110825
  Transmission Date: 20111222
  Serious: Yes (Other)
  Sender: FDA-Public Use
  Company Number: US-PFIZER INC-2011199242

PATIENT
  Sex: Female
  Weight: 74.8 kg

DRUGS (1)
  1. PREMPRO [Suspect]
     Indication: MENOPAUSE
     Dosage: UNK
     Route: 048

REACTIONS (1)
  - VAGINAL HAEMORRHAGE [None]
